FAERS Safety Report 4304908-7 (Version None)
Quarter: 2004Q1

REPORT INFORMATION
  Report Type: 
  Country: None (occurrence: None)
  Receive Date: 20040226
  Receipt Date: 20040108
  Transmission Date: 20041129
  Serious: No
  Sender: FDA-Public Use
  Company Number: US-GLAXOSMITHKLINE-A0492410A

PATIENT
  Sex: Female

DRUGS (4)
  1. WELLBUTRIN [Suspect]
     Dosage: 300MG PER DAY
     Route: 048
  2. VALIUM [Concomitant]
     Dosage: 2MG UNKNOWN
     Route: 048
  3. PROZAC [Concomitant]
     Dosage: 40MG UNKNOWN
     Route: 048
  4. SEROQUEL [Concomitant]
     Dosage: 100MG UNKNOWN
     Route: 065

REACTIONS (1)
  - TREMOR [None]
